FAERS Safety Report 18484504 (Version 4)
Quarter: 2020Q4

REPORT INFORMATION
  Report Type: Spontaneous
  Country: US (occurrence: US)
  Receive Date: 20201110
  Receipt Date: 20201218
  Transmission Date: 20210114
  Serious: Yes (Other)
  Sender: FDA-Public Use
  Company Number: US-UNITED THERAPEUTICS-UNT-2020-017300

PATIENT
  Sex: Female
  Weight: 59.41 kg

DRUGS (2)
  1. REMODULIN [Suspect]
     Active Substance: TREPROSTINIL
     Dosage: 0.080 ?G/KG, CONTINUING
     Route: 058
  2. REMODULIN [Suspect]
     Active Substance: TREPROSTINIL
     Indication: PULMONARY ARTERIAL HYPERTENSION
     Dosage: UNK, CONTINUING
     Route: 058
     Dates: start: 20130104

REACTIONS (5)
  - Toothache [Unknown]
  - Device related infection [Unknown]
  - Infusion site infection [Unknown]
  - Device use error [Unknown]
  - Infusion site pain [Unknown]

NARRATIVE: CASE EVENT DATE: 2020
